FAERS Safety Report 10662272 (Version 1)
Quarter: 2014Q4

REPORT INFORMATION
  Report Type: Spontaneous
  Country: US (occurrence: None)
  Receive Date: 20141217
  Receipt Date: 20141217
  Transmission Date: 20150529
  Serious: No
  Sender: FDA-Public Use
  Company Number: None

PATIENT
  Age: 34 Year
  Sex: Female
  Weight: 108.86 kg

DRUGS (1)
  1. CONTRAVE [Suspect]
     Active Substance: BUPROPION HYDROCHLORIDE\NALTREXONE HYDROCHLORIDE
     Indication: WEIGHT DECREASED
     Dosage: 2 PILLS
     Route: 048
     Dates: start: 20141119, end: 20141216

REACTIONS (5)
  - Drug ineffective [None]
  - Depressed mood [None]
  - Emotional disorder [None]
  - Abnormal dreams [None]
  - Feeling abnormal [None]

NARRATIVE: CASE EVENT DATE: 20141215
